FAERS Safety Report 6984076-3 (Version None)
Quarter: 2010Q3

REPORT INFORMATION
  Report Type: 
  Country: None (occurrence: None)
  Receive Date: 20100915
  Receipt Date: 20090508
  Transmission Date: 20110219
  Serious: No
  Sender: FDA-Public Use
  Company Number: US-WYE-H09275609

PATIENT
  Sex: Female
  Weight: 69.01 kg

DRUGS (4)
  1. PRISTIQ [Suspect]
     Indication: DEPRESSION
     Route: 048
     Dates: start: 20090507
  2. FOSAMAX [Concomitant]
  3. SPIRIVA [Concomitant]
  4. LIPITOR [Concomitant]

REACTIONS (1)
  - INSOMNIA [None]
